FAERS Safety Report 4840162-5 (Version None)
Quarter: 2005Q4

REPORT INFORMATION
  Report Type: 
  Country: None (occurrence: None)
  Receive Date: 20051125
  Receipt Date: 20051117
  Transmission Date: 20060501
  Serious: No
  Sender: FDA-Public Use
  Company Number: 219612

PATIENT
  Age: 13 Year
  Sex: Female

DRUGS (1)
  1. NUTROPIN AQ [Suspect]
     Indication: GROWTH HORMONE DEFICIENCY
     Dosage: 1.6 MG, QD, SUBCUTANEOUS
     Route: 058
     Dates: start: 20020430

REACTIONS (2)
  - FALL [None]
  - UPPER LIMB FRACTURE [None]
